FAERS Safety Report 19683015 (Version 1)
Quarter: 2021Q3

REPORT INFORMATION
  Report Type: Spontaneous
  Country: US (occurrence: US)
  Receive Date: 20210810
  Receipt Date: 20210810
  Transmission Date: 20211014
  Serious: No
  Sender: FDA-Public Use
  Company Number: US-HORIZON THERAPEUTICS-HZN-2021-001950

PATIENT

DRUGS (3)
  1. COVID?19 VACCINE [Concomitant]
     Indication: COVID-19
     Dosage: UNK
     Route: 065
  2. COVID?19 VACCINE [Concomitant]
     Dosage: 2ND DOSE OF PFIZER
     Route: 065
     Dates: start: 202103
  3. TEPEZZA [Suspect]
     Active Substance: TEPROTUMUMAB-TRBW
     Indication: PRODUCT USED FOR UNKNOWN INDICATION
     Dosage: RECEIVED ALL 8 INFUSIONS OF TEPEZZA AND COMPLETED AROUND AUGUST?SEPTEMBER 2020 WITH GOOD RESPONSE
     Route: 065
     Dates: end: 202009

REACTIONS (2)
  - Product supply issue [Unknown]
  - Condition aggravated [Unknown]
